FAERS Safety Report 6149143-5 (Version None)
Quarter: 2009Q2

REPORT INFORMATION
  Report Type: 
  Country: None (occurrence: None)
  Receive Date: 20090407
  Receipt Date: 20090325
  Transmission Date: 20091009
  Serious: Yes (Death, Other)
  Sender: FDA-Public Use
  Company Number: 2008-04025

PATIENT
  Age: 69 Year
  Sex: Female
  Weight: 112.9 kg

DRUGS (3)
  1. VELCADE [Suspect]
     Indication: ACUTE MYELOID LEUKAEMIA
     Dosage: 1.5 MG/M2
     Dates: start: 20050310, end: 20050320
  2. IDARUBICIN (IDARUBICIN) CAPSULES, 5.0MG [Suspect]
     Indication: ACUTE MYELOID LEUKAEMIA
     Dosage: 12 MG/M2
     Dates: start: 20050310, end: 20050312
  3. CYTARABINE [Suspect]
     Indication: ACUTE MYELOID LEUKAEMIA
     Dosage: 100 MG/M2
     Dates: start: 20050310, end: 20050316

REACTIONS (5)
  - ACUTE MYELOID LEUKAEMIA RECURRENT [None]
  - DISEASE COMPLICATION [None]
  - DISEASE PROGRESSION [None]
  - OPERATIVE HAEMORRHAGE [None]
  - PROGRESSIVE MULTIFOCAL LEUKOENCEPHALOPATHY [None]
